FAERS Safety Report 7358100-2 (Version None)
Quarter: 2011Q1

REPORT INFORMATION
  Report Type: 
  Country: None (occurrence: None)
  Receive Date: 20110314
  Receipt Date: 20110314
  Transmission Date: 20110831
  Serious: Yes (Other)
  Sender: FDA-Public Use
  Company Number: None

PATIENT
  Sex: Female
  Weight: 61.2356 kg

DRUGS (1)
  1. HYDROCODONE BITARTRATE + ACETAMINOPHEN [Suspect]
     Indication: FIBROMYALGIA
     Dosage: 10/660 TID/PRN ORAL
     Route: 048
     Dates: start: 20030101

REACTIONS (2)
  - THERAPEUTIC PRODUCT INEFFECTIVE [None]
  - PRODUCT SUBSTITUTION ISSUE [None]
